FAERS Safety Report 24353981 (Version 1)
Quarter: 2024Q3

REPORT INFORMATION
  Report Type: Spontaneous
  Country: US (occurrence: None)
  Receive Date: 20240921
  Receipt Date: 20240921
  Transmission Date: 20241017
  Serious: Yes (Other)
  Sender: Public
  Company Number: None

PATIENT
  Age: 28 Year
  Sex: Male
  Weight: 51.52 kg

DRUGS (4)
  1. ESCITALOPRAM [Suspect]
     Active Substance: ESCITALOPRAM OXALATE
     Indication: Major depression
  2. MIRTAZAPINE [Suspect]
     Active Substance: MIRTAZAPINE
  3. ESCITALOPRAM [Concomitant]
     Active Substance: ESCITALOPRAM OXALATE
  4. MIRTAZAPINE [Concomitant]
     Active Substance: MIRTAZAPINE

REACTIONS (2)
  - Abnormal dreams [None]
  - Emotional distress [None]

NARRATIVE: CASE EVENT DATE: 20220615
